FAERS Safety Report 22097099 (Version 1)
Quarter: 2023Q1

REPORT INFORMATION
  Report Type: Report from Study
  Country: BR (occurrence: BR)
  Receive Date: 20230315
  Receipt Date: 20230315
  Transmission Date: 20230417
  Serious: Yes (Other)
  Sender: FDA-Public Use
  Company Number: BR-CELLTRION INC.-2023BR005316

PATIENT

DRUGS (2)
  1. INFLIXIMAB [Suspect]
     Active Substance: INFLIXIMAB
     Indication: Crohn^s disease
     Dosage: 3 AMPOULES EVERY 56 DAYS
     Route: 042
     Dates: start: 20221007
  2. INFLIXIMAB [Suspect]
     Active Substance: INFLIXIMAB
     Dosage: SECOND INFUSION

REACTIONS (7)
  - Arrhythmia [Recovering/Resolving]
  - Hypersensitivity [Recovering/Resolving]
  - Lacrimation increased [Recovering/Resolving]
  - Head discomfort [Recovering/Resolving]
  - Flushing [Recovering/Resolving]
  - Skin discolouration [Unknown]
  - Therapy interrupted [Unknown]
